FAERS Safety Report 16451291 (Version 1)
Quarter: 2019Q2

REPORT INFORMATION
  Report Type: Spontaneous
  Country: ES (occurrence: ES)
  Receive Date: 20190619
  Receipt Date: 20190619
  Transmission Date: 20190711
  Serious: Yes (Other)
  Sender: FDA-Public Use
  Company Number: ES-PFIZER INC-2019257217

PATIENT
  Age: 31 Year
  Sex: Female
  Weight: 83 kg

DRUGS (1)
  1. LYRICA [Suspect]
     Active Substance: PREGABALIN
     Indication: INTERVERTEBRAL DISC PROTRUSION
     Dosage: 75 MG, EVERY 24 HOUR,ONE AT NIGHT
     Route: 048
     Dates: start: 20190528, end: 20190529

REACTIONS (2)
  - Throat irritation [Recovering/Resolving]
  - Tongue oedema [Recovering/Resolving]

NARRATIVE: CASE EVENT DATE: 20190529
